FAERS Safety Report 19737251 (Version 1)
Quarter: 2021Q3

REPORT INFORMATION
  Report Type: Spontaneous
  Country: US (occurrence: US)
  Receive Date: 20210823
  Receipt Date: 20210823
  Transmission Date: 20211014
  Serious: No
  Sender: FDA-Public Use
  Company Number: US-GLAXOSMITHKLINE-USCH2021056437

PATIENT
  Age: 48 Year
  Sex: Female

DRUGS (1)
  1. NICODERM CQ [Suspect]
     Active Substance: NICOTINE
     Indication: SMOKING CESSATION THERAPY
     Dosage: UNK
     Dates: start: 20210818, end: 20210819

REACTIONS (3)
  - Insomnia [Recovering/Resolving]
  - Headache [Recovering/Resolving]
  - Nightmare [Recovering/Resolving]

NARRATIVE: CASE EVENT DATE: 20210818
